FAERS Safety Report 8473544-3 (Version None)
Quarter: 2012Q2

REPORT INFORMATION
  Report Type: 
  Country: None (occurrence: None)
  Receive Date: 20120628
  Receipt Date: 20120619
  Transmission Date: 20120825
  Serious: Yes (Other)
  Sender: FDA-Public Use
  Company Number: US-SANOFI-AVENTIS-2012SA044432

PATIENT
  Sex: Female

DRUGS (3)
  1. METFORMIN HCL [Suspect]
     Route: 065
  2. AMARYL [Suspect]
     Route: 048
  3. AVANDIA [Suspect]
     Route: 065

REACTIONS (9)
  - NAIL OPERATION [None]
  - FALL [None]
  - NAUSEA [None]
  - MOBILITY DECREASED [None]
  - APHASIA [None]
  - CHEST PAIN [None]
  - DIZZINESS [None]
  - MEMORY IMPAIRMENT [None]
  - BLOOD GLUCOSE DECREASED [None]
